FAERS Safety Report 20015561 (Version 1)
Quarter: 2021Q4

REPORT INFORMATION
  Report Type: Spontaneous
  Country: US (occurrence: None)
  Receive Date: 20211101
  Receipt Date: 20211101
  Transmission Date: 20220304
  Serious: No
  Sender: FDA-Public Use
  Company Number: None

PATIENT
  Sex: Male

DRUGS (16)
  1. LETAIRIS [Suspect]
     Active Substance: AMBRISENTAN
     Indication: Pulmonary fibrosis
     Dosage: FREQUENCY : DAILY;?
     Route: 048
  2. PLAQUENIL [Concomitant]
     Active Substance: HYDROXYCHLOROQUINE SULFATE
  3. SPIRONOLACTONE [Concomitant]
     Active Substance: SPIRONOLACTONE
  4. FAMOTIDINE [Concomitant]
     Active Substance: FAMOTIDINE
  5. HUMIRA [Concomitant]
     Active Substance: ADALIMUMAB
  6. CALCIUM [Concomitant]
     Active Substance: CALCIUM
  7. DILTIAZEM HYDROCHLORIDE [Concomitant]
     Active Substance: DILTIAZEM HYDROCHLORIDE
  8. MULTI VITAMIN AND MINERAL [Concomitant]
  9. PREDNISONE [Concomitant]
     Active Substance: PREDNISONE
  10. VITAMIN C [Concomitant]
     Active Substance: ASCORBIC ACID
  11. ARTHROTEC [Concomitant]
     Active Substance: DICLOFENAC SODIUM\MISOPROSTOL
  12. FOLIC ACID [Concomitant]
     Active Substance: FOLIC ACID
  13. FUROSEMIDE [Concomitant]
     Active Substance: FUROSEMIDE
  14. ZINC CHLORIDE [Concomitant]
     Active Substance: ZINC CHLORIDE
  15. ADCIRCA [Concomitant]
     Active Substance: TADALAFIL
  16. DICLOFENAC [Concomitant]
     Active Substance: DICLOFENAC

REACTIONS (3)
  - Intentional dose omission [None]
  - Wrong technique in product usage process [None]
  - Product availability issue [None]
